FAERS Safety Report 12344029 (Version 2)
Quarter: 2016Q2

REPORT INFORMATION
  Report Type: Spontaneous
  Country: US (occurrence: US)
  Receive Date: 20160507
  Receipt Date: 20160630
  Transmission Date: 20160815
  Serious: Yes (Other)
  Sender: FDA-Public Use
  Company Number: US-JNJFOC-20160408790

PATIENT
  Age: 72 Year
  Sex: Female
  Weight: 74.84 kg

DRUGS (3)
  1. XARELTO [Suspect]
     Active Substance: RIVAROXABAN
     Indication: CEREBROVASCULAR ACCIDENT PROPHYLAXIS
     Route: 048
     Dates: start: 201406
  2. XARELTO [Suspect]
     Active Substance: RIVAROXABAN
     Indication: ATRIAL FIBRILLATION
     Route: 048
     Dates: start: 201406
  3. OMEPRAZOLE. [Concomitant]
     Active Substance: OMEPRAZOLE
     Route: 065
     Dates: start: 20160406

REACTIONS (10)
  - Feeling hot [Not Recovered/Not Resolved]
  - Vaginal haemorrhage [Recovered/Resolved]
  - Haemoptysis [Recovered/Resolved]
  - Haematemesis [Recovered/Resolved]
  - Nasopharyngitis [Recovered/Resolved]
  - Haemorrhoidal haemorrhage [Unknown]
  - Epistaxis [Recovered/Resolved]
  - Muscle spasms [Not Recovered/Not Resolved]
  - Ocular hyperaemia [Not Recovered/Not Resolved]
  - Tinnitus [Not Recovered/Not Resolved]

NARRATIVE: CASE EVENT DATE: 2014
